FAERS Safety Report 9098083 (Version 1)
Quarter: 2013Q1

REPORT INFORMATION
  Report Type: Spontaneous
  Country: US (occurrence: US)
  Receive Date: 20130213
  Receipt Date: 20130213
  Transmission Date: 20140127
  Serious: Yes (Other)
  Sender: FDA-Public Use
  Company Number: US-ELI_LILLY_AND_COMPANY-US201302001870

PATIENT
  Age: 69 Year
  Sex: Male

DRUGS (2)
  1. AXIRON [Suspect]
     Indication: BLOOD TESTOSTERONE DECREASED
     Dosage: 30 MG, QD
     Route: 065
     Dates: start: 2012
  2. AXIRON [Suspect]
     Dosage: 60 MG, QD
     Route: 065

REACTIONS (5)
  - Chest pain [Unknown]
  - Chest discomfort [Unknown]
  - Agitation [Unknown]
  - Anxiety [Unknown]
  - Anxiety [Unknown]
